FAERS Safety Report 7100841-6 (Version None)
Quarter: 2010Q4

REPORT INFORMATION
  Report Type: 
  Country: None (occurrence: None)
  Receive Date: 20101113
  Receipt Date: 20100322
  Transmission Date: 20110411
  Serious: No
  Sender: FDA-Public Use
  Company Number: US-ALLERGAN-1003742US

PATIENT
  Age: 44 Year
  Sex: Female

DRUGS (9)
  1. BOTOXA? [Suspect]
     Indication: MUSCLE SPASTICITY
     Dosage: UNK
     Route: 030
     Dates: start: 20091016, end: 20091016
  2. LYRICA [Concomitant]
  3. PAMELOR [Concomitant]
  4. YAZ [Concomitant]
  5. LEXAPRO [Concomitant]
  6. MACROBID [Concomitant]
  7. FISH OIL [Concomitant]
  8. CALCIUM [Concomitant]
  9. VITAMIN D [Concomitant]

REACTIONS (1)
  - MUSCLE TIGHTNESS [None]
